FAERS Safety Report 7077018-6 (Version None)
Quarter: 2010Q4

REPORT INFORMATION
  Report Type: 
  Country: None (occurrence: None)
  Receive Date: 20101101
  Receipt Date: 20101021
  Transmission Date: 20110411
  Serious: Yes (Other)
  Sender: FDA-Public Use
  Company Number: B0682115A

PATIENT
  Sex: Female

DRUGS (2)
  1. ALLI [Suspect]
     Route: 065
  2. PSYCHOTROPIC DRUGS [Concomitant]

REACTIONS (2)
  - CIRCULATORY COLLAPSE [None]
  - DIARRHOEA [None]
